FAERS Safety Report 19378192 (Version 1)
Quarter: 2021Q2

REPORT INFORMATION
  Report Type: Report from Study
  Country: FR (occurrence: FR)
  Receive Date: 20210605
  Receipt Date: 20210605
  Transmission Date: 20210717
  Serious: Yes (Other)
  Sender: FDA-Public Use
  Company Number: FR-SHIRE-FR202026098

PATIENT
  Age: 67 Year
  Sex: Female

DRUGS (8)
  1. TEDUGLUTIDE [Suspect]
     Active Substance: TEDUGLUTIDE
     Indication: SHORT-BOWEL SYNDROME
     Dosage: 3.59 MILLIGRAM, 1X/DAY:QD
     Route: 065
     Dates: start: 20190430
  2. SELENIUM [Concomitant]
     Active Substance: SELENIUM
     Indication: SELENIUM DEFICIENCY
  3. TEDUGLUTIDE [Suspect]
     Active Substance: TEDUGLUTIDE
     Indication: SHORT-BOWEL SYNDROME
     Dosage: 3.59 MILLIGRAM, 1X/DAY:QD
     Route: 065
     Dates: start: 20190430
  4. VITAMIN C [Concomitant]
     Active Substance: ASCORBIC ACID
     Indication: VITAMIN C DEFICIENCY
  5. TEDUGLUTIDE [Suspect]
     Active Substance: TEDUGLUTIDE
     Indication: SHORT-BOWEL SYNDROME
     Dosage: 3.59 MILLIGRAM, 1X/DAY:QD
     Route: 065
     Dates: start: 20190430
  6. MAG 2 [MAGNESIUM CARBONATE] [Concomitant]
     Active Substance: MAGNESIUM CARBONATE
     Indication: PROPHYLAXIS
  7. SPASFON [PHLOROGLUCINOL;TRIMETHYLPHLOROGLUCINOL] [Concomitant]
     Active Substance: PHLOROGLUCINOL\1,3,5-TRIMETHOXYBENZENE
     Indication: PROPHYLAXIS
  8. TEDUGLUTIDE [Suspect]
     Active Substance: TEDUGLUTIDE
     Indication: SHORT-BOWEL SYNDROME
     Dosage: 3.59 MILLIGRAM, 1X/DAY:QD
     Route: 065
     Dates: start: 20190430

REACTIONS (2)
  - Portal hypertension [Not Recovered/Not Resolved]
  - Pulmonary hypertension [Not Recovered/Not Resolved]

NARRATIVE: CASE EVENT DATE: 20200612
